FAERS Safety Report 15135393 (Version 5)
Quarter: 2018Q3

REPORT INFORMATION
  Report Type: Spontaneous
  Country: FR (occurrence: FR)
  Receive Date: 20180712
  Receipt Date: 20180926
  Transmission Date: 20181010
  Serious: Yes (Hospitalization, Other)
  Sender: FDA-Public Use
  Company Number: FR-OTSUKA-2016_005845

PATIENT
  Age: 11 Year
  Sex: Male
  Weight: 54 kg

DRUGS (7)
  1. OXCARBAZEPINE. [Suspect]
     Active Substance: OXCARBAZEPINE
     Indication: SEIZURE
     Dosage: 300 MG, BID
     Route: 065
     Dates: start: 2008, end: 201509
  2. LEVETIRACETAM. [Concomitant]
     Active Substance: LEVETIRACETAM
     Indication: SEIZURE
     Dosage: 900 MG, BID
     Route: 065
     Dates: start: 201509
  3. TOPIRAMATE. [Concomitant]
     Active Substance: TOPIRAMATE
     Indication: EPILEPSY
     Dosage: 50 MG, QD
     Route: 065
     Dates: start: 201509
  4. RISPERIDONE. [Suspect]
     Active Substance: RISPERIDONE
     Indication: ABNORMAL BEHAVIOUR
     Dosage: 0.25 MG, QD
     Route: 065
     Dates: start: 201508, end: 201509
  5. ARIPIPRAZOLE. [Suspect]
     Active Substance: ARIPIPRAZOLE
     Indication: AGGRESSION
     Dosage: 5 MG/KG, QD
     Route: 048
     Dates: start: 20150917, end: 20160126
  6. ARIPIPRAZOLE. [Suspect]
     Active Substance: ARIPIPRAZOLE
     Indication: ABNORMAL BEHAVIOUR
  7. LEVETIRACETAM. [Concomitant]
     Active Substance: LEVETIRACETAM
     Indication: EPILEPSY
     Dosage: 450 MG, BID
     Route: 065
     Dates: start: 2008

REACTIONS (8)
  - Rebound effect [Unknown]
  - Somnolence [Recovered/Resolved]
  - Glomerular filtration rate decreased [Recovered/Resolved]
  - Dysuria [Recovered/Resolved]
  - Seizure [Unknown]
  - Micturition frequency decreased [Recovered/Resolved]
  - Urinary retention [Recovered/Resolved]
  - Product use in unapproved indication [Unknown]

NARRATIVE: CASE EVENT DATE: 201508
